FAERS Safety Report 15883812 (Version 1)
Quarter: 2019Q1

REPORT INFORMATION
  Report Type: Report from Study
  Country: ES (occurrence: ES)
  Receive Date: 20190129
  Receipt Date: 20190129
  Transmission Date: 20190417
  Serious: Yes (Hospitalization, Other)
  Sender: FDA-Public Use
  Company Number: ES-ROCHE-2247767

PATIENT

DRUGS (3)
  1. PREDNISONE. [Suspect]
     Active Substance: PREDNISONE
     Indication: TEMPORAL ARTERITIS
     Route: 065
  2. TOCILIZUMAB. [Suspect]
     Active Substance: TOCILIZUMAB
     Indication: TEMPORAL ARTERITIS
     Route: 058
  3. TOCILIZUMAB. [Suspect]
     Active Substance: TOCILIZUMAB
     Indication: TEMPORAL ARTERITIS
     Route: 042

REACTIONS (25)
  - Meningitis [Unknown]
  - Leukopenia [Unknown]
  - Myelodysplastic syndrome [Unknown]
  - Adenocarcinoma of colon [Unknown]
  - Diverticulitis [Unknown]
  - Bursitis infective [Unknown]
  - Infected skin ulcer [Unknown]
  - Off label use [Unknown]
  - Intentional product use issue [Unknown]
  - Anaemia [Unknown]
  - Thrombocytopenia [Unknown]
  - Hypertensive crisis [Unknown]
  - Sepsis [Unknown]
  - Dementia Alzheimer^s type [Unknown]
  - Pneumonia [Unknown]
  - Anal abscess [Unknown]
  - Cellulitis [Unknown]
  - Neutropenia [Unknown]
  - Hepatotoxicity [Unknown]
  - Urinary tract infection [Recovered/Resolved]
  - Urosepsis [Unknown]
  - Atrioventricular block [Unknown]
  - Herpes zoster [Unknown]
  - Pneumonia cytomegaloviral [Unknown]
  - Myopathy [Unknown]
